FAERS Safety Report 7720282-8 (Version None)
Quarter: 2011Q3

REPORT INFORMATION
  Report Type: 
  Country: None (occurrence: None)
  Receive Date: 20110831
  Receipt Date: 20110826
  Transmission Date: 20111222
  Serious: Yes (Hospitalization)
  Sender: FDA-Public Use
  Company Number: FR-PFIZER INC-2011198575

PATIENT
  Age: 66 Year
  Sex: Male

DRUGS (11)
  1. MEDROL [Suspect]
     Dosage: 4 MG DAILY
     Route: 048
     Dates: start: 20110601, end: 20110701
  2. FUROSEMIDE [Concomitant]
     Dosage: 80 MG, 1X/DAY
     Route: 048
     Dates: start: 20101101
  3. RAMIPRIL [Concomitant]
     Dosage: 5 MG, 1X/DAY
     Route: 048
     Dates: start: 20101101
  4. MEDROL [Suspect]
     Dosage: 48 MG DAILY
     Route: 048
     Dates: start: 20101221
  5. MEDROL [Suspect]
     Dosage: 6 MG DAILY
     Route: 048
     Dates: start: 20110501
  6. MEDROL [Suspect]
     Dosage: 100 MG DAILY
     Route: 048
     Dates: start: 20101208
  7. MEDROL [Suspect]
     Dosage: 32 MG DAILY
     Route: 048
     Dates: start: 20110127
  8. BISOPROLOL FUMARATE [Concomitant]
     Dosage: UNK
     Route: 048
     Dates: start: 20101101
  9. ASPIRIN [Concomitant]
     Dosage: 160 MG, 1X/DAY
     Route: 048
     Dates: start: 20101101
  10. NEXIUM [Concomitant]
     Dosage: 20 MG, 1X/DAY
     Route: 048
     Dates: start: 20101101
  11. MEDROL [Suspect]
     Dosage: 16 MG DAILY
     Route: 048
     Dates: start: 20110315

REACTIONS (4)
  - GOUT [None]
  - PULMONARY TUBERCULOSIS [None]
  - BLOOD CREATINE PHOSPHOKINASE INCREASED [None]
  - MYALGIA [None]
